FAERS Safety Report 5816598-2 (Version None)
Quarter: 2008Q3

REPORT INFORMATION
  Report Type: 
  Country: None (occurrence: None)
  Receive Date: 20080717
  Receipt Date: 20080515
  Transmission Date: 20090109
  Serious: Yes (Death)
  Sender: FDA-Public Use
  Company Number: 2008SP009229

PATIENT
  Age: 76 Year
  Sex: Male
  Weight: 81.6475 kg

DRUGS (4)
  1. INTEGRILIN [Suspect]
     Indication: CORONARY ANGIOPLASTY
     Dosage: 7.3 ML;ONCE;INBO ; 7.3 ML;ONCE;INBO ; 13 ML;QH;INDRP
     Dates: start: 20080515, end: 20080515
  2. INTEGRILIN [Suspect]
     Indication: CORONARY ANGIOPLASTY
     Dosage: 7.3 ML;ONCE;INBO ; 7.3 ML;ONCE;INBO ; 13 ML;QH;INDRP
     Dates: start: 20080515, end: 20080515
  3. INTEGRILIN [Suspect]
     Indication: CORONARY ANGIOPLASTY
     Dosage: 7.3 ML;ONCE;INBO ; 7.3 ML;ONCE;INBO ; 13 ML;QH;INDRP
     Dates: start: 20080515
  4. HEPARIN [Suspect]
     Indication: DRUG USE FOR UNKNOWN INDICATION

REACTIONS (1)
  - HAEMORRHAGE INTRACRANIAL [None]
